FAERS Safety Report 20837083 (Version 2)
Quarter: 2025Q3

REPORT INFORMATION
  Report Type: Spontaneous
  Country: EU (occurrence: EU)
  Receive Date: 20220517
  Receipt Date: 20250823
  Transmission Date: 20251020
  Serious: Yes (Other)
  Sender: AUROBINDO
  Company Number: EU-TECNIFAR-000085

PATIENT
  Age: 5 Decade
  Sex: Female

DRUGS (17)
  1. LAMOTRIGINE [Suspect]
     Active Substance: LAMOTRIGINE
     Indication: Orthostatic headache
     Route: 065
  2. VALPROIC ACID [Suspect]
     Active Substance: VALPROIC ACID
     Indication: Orthostatic headache
     Route: 065
  3. VITAMIN A [Suspect]
     Active Substance: VITAMIN A
     Indication: Orthostatic headache
     Route: 065
  4. CAFFEINE [Suspect]
     Active Substance: CAFFEINE
     Indication: Orthostatic headache
     Route: 042
  5. METHYLPREDNISOLONE [Suspect]
     Active Substance: METHYLPREDNISOLONE
     Indication: Orthostatic headache
     Route: 042
  6. RETINOL [Suspect]
     Active Substance: RETINOL
     Indication: Orthostatic headache
     Dosage: 7500 INTERNATIONAL UNIT, ONCE A DAY
     Route: 065
  7. THEOPHYLLINE [Suspect]
     Active Substance: THEOPHYLLINE
     Indication: Orthostatic headache
     Route: 065
  8. AMITRIPTYLINE [Concomitant]
     Active Substance: AMITRIPTYLINE
     Indication: Orthostatic headache
     Route: 065
  9. AMANTADINE [Concomitant]
     Active Substance: AMANTADINE
     Indication: Orthostatic headache
     Route: 065
  10. BOTULINUM TOXIN NOS [Concomitant]
     Active Substance: BOTULINUM TOXIN NOS
     Indication: Orthostatic headache
     Route: 065
  11. DULOXETINE [Concomitant]
     Active Substance: DULOXETINE
     Indication: Orthostatic headache
     Route: 065
  12. FENTANYL [Concomitant]
     Active Substance: FENTANYL
     Indication: Orthostatic headache
     Route: 065
  13. GABAPENTIN [Concomitant]
     Active Substance: GABAPENTIN
     Indication: Orthostatic headache
     Route: 065
  14. LITHIUM [Concomitant]
     Active Substance: LITHIUM
     Indication: Orthostatic headache
     Route: 065
  15. PREDNISOLONE [Concomitant]
     Active Substance: PREDNISOLONE
     Indication: Orthostatic headache
     Route: 065
  16. SERTRALINE [Concomitant]
     Active Substance: SERTRALINE HYDROCHLORIDE
     Indication: Major depression
     Route: 065
  17. SULPIRIDE [Concomitant]
     Active Substance: SULPIRIDE
     Indication: Orthostatic headache
     Route: 065

REACTIONS (3)
  - Drug-induced liver injury [Unknown]
  - Major depression [Unknown]
  - Off label use [Unknown]
